FAERS Safety Report 8273568-5 (Version None)
Quarter: 2012Q2

REPORT INFORMATION
  Report Type: 
  Country: None (occurrence: None)
  Receive Date: 20120411
  Receipt Date: 20120117
  Transmission Date: 20120825
  Serious: No
  Sender: FDA-Public Use
  Company Number: US-TEVA-318096USA

PATIENT
  Sex: Female
  Weight: 81.72 kg

DRUGS (4)
  1. MEDROXYPROGESTERONE [Concomitant]
     Route: 048
  2. IBANDRONATE SODIUM [Concomitant]
     Route: 048
  3. NUVIGIL [Suspect]
     Indication: SLEEP APNOEA SYNDROME
     Route: 048
     Dates: start: 20120116, end: 20120116
  4. FAMOTIDINE [Concomitant]
     Indication: GASTROOESOPHAGEAL REFLUX DISEASE
     Route: 048

REACTIONS (4)
  - FLUID RETENTION [None]
  - DIZZINESS [None]
  - NASAL CONGESTION [None]
  - MIDDLE INSOMNIA [None]
